FAERS Safety Report 11623814 (Version 1)
Quarter: 2015Q4

REPORT INFORMATION
  Report Type: Spontaneous
  Country: US (occurrence: US)
  Receive Date: 20151013
  Receipt Date: 20151013
  Transmission Date: 20160304
  Serious: No
  Sender: FDA-Public Use
  Company Number: US-JNJFOC-20150311122

PATIENT
  Age: 83 Year
  Sex: Female
  Weight: 63.5 kg

DRUGS (2)
  1. TYLENOL EXTRA STRENGTH [Suspect]
     Active Substance: ACETAMINOPHEN
     Indication: SINUS HEADACHE
     Dosage: 1 PER DAY AND IF NEEDED ONE AT NIGHT
     Route: 048
  2. TYLENOL EXTRA STRENGTH [Suspect]
     Active Substance: ACETAMINOPHEN
     Indication: EAR PAIN
     Dosage: 1 PER DAY AND IF NEEDED ONE AT NIGHT
     Route: 048

REACTIONS (5)
  - Incorrect dose administered [Unknown]
  - Reaction to drug excipients [Unknown]
  - Expired product administered [Unknown]
  - Product use issue [Unknown]
  - Inappropriate schedule of drug administration [Unknown]
